FAERS Safety Report 4892457-7 (Version None)
Quarter: 2006Q1

REPORT INFORMATION
  Report Type: 
  Country: None (occurrence: None)
  Receive Date: 20060126
  Receipt Date: 20051005
  Transmission Date: 20060701
  Serious: Yes (Hospitalization, Disabling)
  Sender: FDA-Public Use
  Company Number: US-MERCK-0510USA04448

PATIENT
  Age: 40 Year
  Sex: Female
  Weight: 47 kg

DRUGS (7)
  1. VIOXX [Suspect]
     Indication: FIBROMYALGIA
     Route: 048
     Dates: start: 20040101, end: 20040930
  2. XANAX [Concomitant]
     Route: 065
  3. ZANAFLEX [Concomitant]
     Route: 065
  4. AMBIEN [Concomitant]
     Route: 065
  5. CLEOCIN [Concomitant]
     Route: 065
  6. LORTAB [Concomitant]
     Route: 065
  7. FLAGYL [Concomitant]
     Route: 065

REACTIONS (7)
  - ANAEMIA [None]
  - CARDIOVASCULAR DISORDER [None]
  - HERNIA [None]
  - OVARIAN CYST RUPTURED [None]
  - PERITONEAL HAEMORRHAGE [None]
  - PRESCRIBED OVERDOSE [None]
  - THROMBOSIS [None]
